FAERS Safety Report 4552683-3 (Version None)
Quarter: 2005Q1

REPORT INFORMATION
  Report Type: 
  Country: None (occurrence: None)
  Receive Date: 20050114
  Receipt Date: 20041217
  Transmission Date: 20050727
  Serious: Yes (Other)
  Sender: FDA-Public Use
  Company Number: PHNU2004DE04242

PATIENT
  Age: 25 Year
  Sex: Female
  Weight: 57 kg

DRUGS (13)
  1. BISOPROLOL FUMARATE [Concomitant]
     Indication: HYPERTENSION
     Dosage: 5 MG, QD
     Route: 048
     Dates: start: 20040614
  2. CALCIUM ACETATE [Concomitant]
     Indication: HYPERPHOSPHATAEMIA
     Dosage: 2500MG/DAY
     Route: 065
     Dates: start: 20040308
  3. POTASSIUM [Concomitant]
     Route: 065
  4. ACETAMINOPHEN [Suspect]
     Indication: ARTHRALGIA
     Dosage: 500 MG, PRN
     Route: 048
     Dates: start: 20040426, end: 20041222
  5. TIMOX [Suspect]
     Indication: POLYNEUROPATHY
     Dosage: 150 MG, QD
     Route: 048
     Dates: start: 20040830, end: 20041222
  6. NOVAMINSULFON ^LICHTENSTEIN^ [Suspect]
     Indication: POLYNEUROPATHY
     Dosage: 20 DRP, PRN
     Route: 048
     Dates: start: 20041015, end: 20041222
  7. OMEPRAZOLE [Suspect]
     Dosage: 40 MG, QD
     Route: 048
     Dates: start: 20041111, end: 20041222
  8. DOXEPIN HCL [Suspect]
     Indication: SLEEP DISORDER
     Dosage: 50 MG, QD
     Route: 048
     Dates: start: 20041202, end: 20041222
  9. ERYPO [Concomitant]
     Indication: NEPHROGENIC ANAEMIA
     Dosage: 3000 IU, QW
     Route: 065
     Dates: start: 20041027
  10. DESFERAL [Suspect]
     Indication: HAEMOSIDEROSIS
     Dosage: 500 MG, QW3
     Route: 042
     Dates: start: 20041027, end: 20041222
  11. ANTI-KALIUM [Suspect]
     Indication: HYPERKALAEMIA
     Dosage: 15000 UNK, PRN
     Route: 048
     Dates: start: 20040419, end: 20041222
  12. KARVEA [Suspect]
     Indication: HYPERTENSION
     Dosage: 75 MG, QD
     Route: 048
     Dates: start: 20040308, end: 20041222
  13. CALCITRIOL [Suspect]
     Indication: HYPERPARATHYROIDISM SECONDARY
     Dosage: 0.25 MG, QD
     Route: 048
     Dates: start: 20040308, end: 20041222

REACTIONS (10)
  - HAEMATOCRIT DECREASED [None]
  - HAEMOGLOBIN DECREASED [None]
  - LARYNGITIS [None]
  - LEUKOPENIA [None]
  - LYMPHOCYTE PERCENTAGE DECREASED [None]
  - NEUTROPENIA [None]
  - PANCYTOPENIA [None]
  - RED BLOOD CELL COUNT DECREASED [None]
  - SLEEP DISORDER [None]
  - THROMBOCYTOPENIA [None]
